FAERS Safety Report 9522967 (Version 1)
Quarter: 2013Q1

REPORT INFORMATION
  Report Type: Spontaneous
  Country: US (occurrence: None)
  Receive Date: 20130305
  Receipt Date: 20130305
  Transmission Date: 20140127
  Serious: Yes (Disabling, Other)
  Sender: FDA-Public Use
  Company Number: 163-21880-12031860

PATIENT
  Age: 67 Year
  Sex: Male
  Weight: 82.56 kg

DRUGS (9)
  1. REVLIMID [Suspect]
     Indication: PLASMA CELL MYELOMA
     Dosage: DAILY FOR 14/28 DAYS
     Route: 048
     Dates: start: 20120221, end: 20120228
  2. VELCADE (BORTEZOMIB) [Concomitant]
  3. SIMVASTATIN [Concomitant]
  4. OXYCODONE [Concomitant]
  5. METOPROLOL [Concomitant]
  6. AMLODIPINE [Concomitant]
  7. DIOVAN (VALSARTAN) [Concomitant]
  8. ASPIRIN (ACETYLSALICYLIC ACID) [Concomitant]
  9. MORPHINE XR (MORPHINE) [Concomitant]

REACTIONS (2)
  - Renal impairment [None]
  - Dehydration [None]
